FAERS Safety Report 19191216 (Version 2)
Quarter: 2021Q2

REPORT INFORMATION
  Report Type: Spontaneous
  Country: US (occurrence: US)
  Receive Date: 20210429
  Receipt Date: 20210513
  Transmission Date: 20210717
  Serious: Yes (Other)
  Sender: FDA-Public Use
  Company Number: US-AMGEN-USASP2021061799

PATIENT
  Age: 58 Year
  Sex: Female

DRUGS (1)
  1. PROLIA [Suspect]
     Active Substance: DENOSUMAB
     Indication: PRODUCT USED FOR UNKNOWN INDICATION
     Dosage: UNK
     Route: 065
     Dates: end: 201702

REACTIONS (7)
  - Foot fracture [Unknown]
  - Fall [Unknown]
  - Osteomyelitis [Unknown]
  - Fracture infection [Unknown]
  - Type 1 diabetes mellitus [Unknown]
  - Tendon rupture [Unknown]
  - Tibia fracture [Unknown]

NARRATIVE: CASE EVENT DATE: 2018
